FAERS Safety Report 20643880 (Version 1)
Quarter: 2022Q1

REPORT INFORMATION
  Report Type: Spontaneous
  Country: US (occurrence: None)
  Receive Date: 20220325
  Receipt Date: 20220325
  Transmission Date: 20220423
  Serious: Yes (Hospitalization)
  Sender: FDA-Public Use
  Company Number: None

PATIENT
  Age: 61 Year
  Sex: Female

DRUGS (17)
  1. TACROLIMUS [Suspect]
     Active Substance: TACROLIMUS
     Indication: Liver transplant
     Route: 048
     Dates: start: 20211029
  2. ASPIRIN LOW TAB 81MG EC [Concomitant]
  3. EVEROLIMUS [Concomitant]
     Active Substance: EVEROLIMUS
  4. FERROUS SULF TAB 325MG [Concomitant]
  5. FOLIC ACID TAB 1000MCG [Concomitant]
  6. GABAPENTIN [Concomitant]
     Active Substance: GABAPENTIN
  7. KP VITAMIN D [Concomitant]
  8. LEXAPRO TAB 20MG [Concomitant]
  9. LIPITOR TAB 20MG [Concomitant]
  10. MAGNESIUM TAB 400MG [Concomitant]
  11. MULTIPLE VIT TAB [Concomitant]
  12. PREDNISONE [Concomitant]
     Active Substance: PREDNISONE
  13. ROPINIROLE TAB 0.5MG [Concomitant]
  14. SENNA-S TAB 8.6-50MG [Concomitant]
  15. TACROLIMUS [Concomitant]
     Active Substance: TACROLIMUS
  16. TRAZODONE [Concomitant]
     Active Substance: TRAZODONE HYDROCHLORIDE
  17. ZIPRASIDONE CAP 80MG [Concomitant]

REACTIONS (2)
  - Dehydration [None]
  - Hypotension [None]

NARRATIVE: CASE EVENT DATE: 20220316
